FAERS Safety Report 4582229-5 (Version None)
Quarter: 2005Q1

REPORT INFORMATION
  Report Type: 
  Country: None (occurrence: None)
  Receive Date: 20050214
  Receipt Date: 20050131
  Transmission Date: 20050727
  Serious: Yes (Other)
  Sender: FDA-Public Use
  Company Number: GXKR2005GB00518

PATIENT
  Age: 40 Year
  Sex: Male

DRUGS (4)
  1. DIAZEPAM [Suspect]
  2. DUROGESIC (FENTANYL) [Suspect]
     Dosage: 50 MCG, TRANSDERMAL
     Route: 062
  3. DIHYDROCODEINE (DIHYDROCODEINE) [Suspect]
     Dosage: 270 MG
  4. ALCOHOL (ETHANOL) [Concomitant]

REACTIONS (4)
  - ALCOHOL USE [None]
  - HALLUCINATION [None]
  - IMPRISONMENT [None]
  - INTENTIONAL SELF-INJURY [None]
